FAERS Safety Report 4280414-3 (Version None)
Quarter: 2004Q1

REPORT INFORMATION
  Report Type: 
  Country: None (occurrence: None)
  Receive Date: 20040126
  Receipt Date: 20040114
  Transmission Date: 20041129
  Serious: Yes (Life-Threatening, Other)
  Sender: FDA-Public Use
  Company Number: 2004-01-0609

PATIENT
  Age: 28 Year
  Sex: Male

DRUGS (3)
  1. LABETALOL HCL [Suspect]
     Indication: MALIGNANT HYPERTENSION
     Dosage: 40 MG INTRAVENOUS
     Route: 042
  2. AMLODIPINE BESYLATE [Concomitant]
  3. CALCIUM CARBONATE [Concomitant]

REACTIONS (6)
  - AGITATION [None]
  - BLOOD POTASSIUM INCREASED [None]
  - BUNDLE BRANCH BLOCK LEFT [None]
  - HAEMODIALYSIS [None]
  - HYPOTENSION [None]
  - VENTRICULAR TACHYCARDIA [None]
